FAERS Safety Report 5029933-2 (Version None)
Quarter: 2006Q2

REPORT INFORMATION
  Report Type: 
  Country: None (occurrence: None)
  Receive Date: 20060620
  Receipt Date: 20060605
  Transmission Date: 20061013
  Serious: Yes (Hospitalization)
  Sender: FDA-Public Use
  Company Number: JP-JPN-A200601875

PATIENT
  Age: 72 Year
  Sex: Female
  Weight: 46 kg

DRUGS (3)
  1. ZANTAC [Suspect]
     Indication: GASTRIC ULCER
     Dosage: 75MG PER DAY
     Route: 048
     Dates: start: 20060309, end: 20060530
  2. BAKUMONDO-TO [Suspect]
     Indication: ASTHMA
     Dosage: 3G THREE TIMES PER DAY
     Route: 048
     Dates: end: 20060530
  3. DEPAS [Concomitant]
     Indication: ANXIETY DISORDER
     Dosage: .5MG PER DAY
     Route: 048
     Dates: start: 20060309, end: 20060530

REACTIONS (7)
  - ANOREXIA [None]
  - HEPATIC FUNCTION ABNORMAL [None]
  - LIVER DISORDER [None]
  - MALAISE [None]
  - NAUSEA [None]
  - PYREXIA [None]
  - VOMITING [None]
